FAERS Safety Report 17114712 (Version 1)
Quarter: 2019Q4

REPORT INFORMATION
  Report Type: Spontaneous
  Country: FR (occurrence: FR)
  Receive Date: 20191205
  Receipt Date: 20191205
  Transmission Date: 20200122
  Serious: Yes (Death, Hospitalization)
  Sender: FDA-Public Use
  Company Number: FR-ACCORD-163290

PATIENT
  Age: 76 Year
  Sex: Female

DRUGS (11)
  1. AMOXICILLIN. [Suspect]
     Active Substance: AMOXICILLIN
     Dosage: INCONNUE
     Route: 048
     Dates: start: 20191017, end: 20191019
  2. PARACETAMOL [Suspect]
     Active Substance: ACETAMINOPHEN
     Route: 048
     Dates: start: 20191022
  3. GALVUS [Concomitant]
     Active Substance: VILDAGLIPTIN
     Dosage: STRENGTH: 50 MG
     Route: 048
     Dates: start: 20191019
  4. AUGMENTIN [Suspect]
     Active Substance: AMOXICILLIN\CLAVULANATE POTASSIUM
     Route: 048
     Dates: start: 20191019, end: 20191025
  5. MENADIONE [Concomitant]
     Active Substance: MENADIONE
     Route: 048
     Dates: start: 20191021, end: 20191021
  6. FUROSEMIDE. [Suspect]
     Active Substance: FUROSEMIDE
     Route: 042
     Dates: start: 20191024
  7. ECONAZOLE. [Suspect]
     Active Substance: ECONAZOLE NITRATE
     Route: 067
     Dates: start: 20191023, end: 20191023
  8. OXYCODONE/OXYCODONE HYDROCHLORIDE/OXYCODONE PECTINATE/OXYCODONE TEREPHTHALATE [Concomitant]
     Active Substance: OXYCODONE
     Route: 048
  9. LOVENOX [Suspect]
     Active Substance: ENOXAPARIN SODIUM
     Dosage: 4000 UIANTI-XA / 0.4 ML
     Route: 058
     Dates: start: 20191024
  10. MOVICOL [Suspect]
     Active Substance: POLYETHYLENE GLYCOL 3350\POTASSIUM CHLORIDE\SODIUM BICARBONATE\SODIUM CHLORIDE
     Route: 048
     Dates: start: 20191022
  11. PREVISCAN [Concomitant]
     Route: 048
     Dates: start: 20191022, end: 20191024

REACTIONS (1)
  - Acute generalised exanthematous pustulosis [Fatal]

NARRATIVE: CASE EVENT DATE: 20191025
